FAERS Safety Report 15334295 (Version 10)
Quarter: 2019Q2

REPORT INFORMATION
  Report Type: Spontaneous
  Country: US (occurrence: US)
  Receive Date: 20180830
  Receipt Date: 20190605
  Transmission Date: 20190711
  Serious: No
  Sender: FDA-Public Use
  Company Number: US-PFIZER INC-2018345787

PATIENT
  Age: 68 Year
  Sex: Female
  Weight: 68 kg

DRUGS (7)
  1. IBRANCE [Suspect]
     Active Substance: PALBOCICLIB
     Dosage: UNK
     Route: 048
     Dates: end: 2018
  2. FASLODEX [Concomitant]
     Active Substance: FULVESTRANT
     Dosage: UNK (EVERY TWO WEEKS)
  3. IBRANCE [Suspect]
     Active Substance: PALBOCICLIB
     Dosage: 100 MG, CYCLIC (ONCE A DAY, FOR 21 DAYS AND 7 DAYS)
     Route: 048
     Dates: start: 20180824
  4. IBRANCE [Suspect]
     Active Substance: PALBOCICLIB
     Indication: BREAST CANCER METASTATIC
     Dosage: 100 MG, CYCLIC (ONCE A DAY, FOR 21 DAYS AND 7 DAYS)
     Route: 048
     Dates: start: 20180810, end: 2018
  5. FASLODEX [Concomitant]
     Active Substance: FULVESTRANT
     Dosage: UNK, MONTHLY, (ONCE A MONTH)
  6. IBRANCE [Suspect]
     Active Substance: PALBOCICLIB
     Dosage: 100 MG, CYCLIC (DAILY, FOR 3 WEEKS THEN 1 WEEK OFF)
     Route: 048
     Dates: start: 2018
  7. SIMVASTATIN. [Concomitant]
     Active Substance: SIMVASTATIN
     Dosage: 10 MG, UNK

REACTIONS (16)
  - Faeces hard [Unknown]
  - Urinary tract infection [Unknown]
  - Nerve compression [Unknown]
  - Blood count abnormal [Unknown]
  - Alopecia [Unknown]
  - Pain in extremity [Recovered/Resolved]
  - Bone pain [Not Recovered/Not Resolved]
  - Bacterial infection [Unknown]
  - Haemoglobin decreased [Unknown]
  - Asthenia [Not Recovered/Not Resolved]
  - Headache [Unknown]
  - Chest pain [Recovered/Resolved]
  - White blood cell count decreased [Unknown]
  - Red blood cell count decreased [Unknown]
  - Pain of skin [Unknown]
  - Pyrexia [Recovered/Resolved]

NARRATIVE: CASE EVENT DATE: 2018
